FAERS Safety Report 6442413-2 (Version None)
Quarter: 2009Q4

REPORT INFORMATION
  Report Type: 
  Country: None (occurrence: None)
  Receive Date: 20091112
  Receipt Date: 20091029
  Transmission Date: 20100525
  Serious: Yes (Death)
  Sender: FDA-Public Use
  Company Number: 2009SP033354

PATIENT
  Age: 33 Year
  Sex: Female

DRUGS (2)
  1. ROCURONIUM BROMIDE [Suspect]
     Dosage: ONCE; IV
     Route: 042
  2. ESOMEPRAZOLE MAGNESIUM [Suspect]
     Indication: ABDOMINAL PAIN UPPER

REACTIONS (12)
  - BRONCHOSPASM [None]
  - CARDIAC ARREST [None]
  - COMPLETED SUICIDE [None]
  - CYANOSIS [None]
  - DRUG NAME CONFUSION [None]
  - HAEMODYNAMIC INSTABILITY [None]
  - HYPOTONIA [None]
  - MEDICATION ERROR [None]
  - PUPIL FIXED [None]
  - RESPIRATORY PARALYSIS [None]
  - UNRESPONSIVE TO STIMULI [None]
  - WRONG DRUG ADMINISTERED [None]
